FAERS Safety Report 12638240 (Version 1)
Quarter: 2016Q3

REPORT INFORMATION
  Report Type: Spontaneous
  Country: US (occurrence: US)
  Receive Date: 20160809
  Receipt Date: 20160809
  Transmission Date: 20161109
  Serious: No
  Sender: FDA-Public Use
  Company Number: US-SA-2016SA085178

PATIENT
  Age: 49 Year
  Sex: Male

DRUGS (2)
  1. PRALUENT [Suspect]
     Active Substance: ALIROCUMAB
     Indication: BLOOD CHOLESTEROL
     Route: 058
     Dates: start: 201510
  2. ALIROCUMAB PREFILLED PEN [Concomitant]
     Active Substance: ALIROCUMAB
     Dates: start: 201510

REACTIONS (8)
  - Genital pain [Recovering/Resolving]
  - Haematuria [Recovering/Resolving]
  - Lower urinary tract symptoms [Recovering/Resolving]
  - Product use issue [Unknown]
  - Candida infection [Recovering/Resolving]
  - Injection site swelling [Not Recovered/Not Resolved]
  - Injection site paraesthesia [Not Recovered/Not Resolved]
  - Pollakiuria [Recovering/Resolving]

NARRATIVE: CASE EVENT DATE: 201603
